FAERS Safety Report 18587930 (Version 3)
Quarter: 2021Q1

REPORT INFORMATION
  Report Type: Spontaneous
  Country: DE (occurrence: DE)
  Receive Date: 20201207
  Receipt Date: 20210130
  Transmission Date: 20210419
  Serious: Yes (Other)
  Sender: FDA-Public Use
  Company Number: NVSC2020DE320473

PATIENT
  Age: 60 Year
  Sex: Female
  Weight: 63 kg

DRUGS (47)
  1. LIPOTALON [Suspect]
     Active Substance: DEXAMETHASONE PALMITATE
     Indication: ARTHRALGIA
     Dosage: 1 DF, TOTAL, SINGLE (LEFT ELBOW)
     Route: 014
     Dates: start: 20181016, end: 20181016
  2. LIPOTALON [Suspect]
     Active Substance: DEXAMETHASONE PALMITATE
     Dosage: 1 DOSAGE FORM, SINGLE
     Route: 014
     Dates: start: 20181120, end: 20181120
  3. LIPOTALON [Suspect]
     Active Substance: DEXAMETHASONE PALMITATE
     Dosage: 1 DOSAGE FORM, SINGLE; BOTH KNEES AND FOOT
     Route: 014
     Dates: start: 20181204, end: 20181204
  4. HYALURON [Concomitant]
     Dosage: 1 DOSAGE FORM, SINGLE; RIGHT KNEE
     Route: 014
     Dates: start: 20181127, end: 20181127
  5. MEAVERIN [Concomitant]
     Indication: PRODUCT USED FOR UNKNOWN INDICATION
     Dosage: 1 DOSAGE FORM, SINGLE
     Route: 014
     Dates: start: 20181016, end: 20181016
  6. MEAVERIN [Concomitant]
     Dosage: 1 DOSAGE FORM, SINGLE
     Route: 065
     Dates: start: 20181102, end: 20181102
  7. MEAVERIN [Concomitant]
     Dosage: 1 DOSAGE FORM, SINGLE
     Route: 065
     Dates: start: 20181016, end: 20181016
  8. DICLOFENAC [Concomitant]
     Active Substance: DICLOFENAC
     Dosage: 1 MILLILITER, SINGLE
     Route: 014
     Dates: start: 20181102, end: 20181102
  9. DEXAMETHASONE. [Suspect]
     Active Substance: DEXAMETHASONE
     Dosage: 1 DOSAGE FORM, SINGLE; LEFT KNEE
     Route: 014
     Dates: start: 20181130, end: 20181130
  10. HYALURON [Concomitant]
     Indication: PRODUCT USED FOR UNKNOWN INDICATION
     Dosage: 1 DOSAGE FORM, SINGLE; RIGHT KNEE
     Route: 014
     Dates: start: 20181106, end: 20181106
  11. HYALURON [Concomitant]
     Dosage: 1 DOSAGE FORM, SINGLE; RIGHT KNEE
     Route: 014
     Dates: start: 20181113, end: 20181113
  12. MEAVERIN [Concomitant]
     Dosage: 1 DOSAGE FORM, SINGLE
     Route: 065
     Dates: start: 20181019, end: 20181019
  13. DICLOFENAC [Concomitant]
     Active Substance: DICLOFENAC
     Dosage: 1 MILLILITER, SINGLE
     Route: 014
     Dates: start: 20181120, end: 20181120
  14. DICLOFENAC [Concomitant]
     Active Substance: DICLOFENAC
     Dosage: 1 MILLILITER, SINGLE
     Route: 014
     Dates: start: 20181127, end: 20181127
  15. NOVAMINSULFON [Concomitant]
     Active Substance: METAMIZOLE
     Indication: PRODUCT USED FOR UNKNOWN INDICATION
     Route: 065
  16. DEXAMETHASONE. [Suspect]
     Active Substance: DEXAMETHASONE
     Dosage: 1 DOSAGE FORM, SINGLE; RIGHT KNEE
     Route: 014
     Dates: start: 20181106, end: 20181106
  17. LIPOTALON [Suspect]
     Active Substance: DEXAMETHASONE PALMITATE
     Dosage: 1 DOSAGE FORM, SINGLE
     Route: 014
     Dates: start: 20181019, end: 20181019
  18. HYALURON [Concomitant]
     Dosage: 1 DOSAGE FORM, SINGLE; BOTH KNEES
     Route: 014
     Dates: start: 20181204, end: 20181204
  19. DEXAMETHASONE. [Suspect]
     Active Substance: DEXAMETHASONE
     Indication: PRODUCT USED FOR UNKNOWN INDICATION
     Dosage: 1 DOSAGE FORM, SINGLE
     Route: 065
     Dates: start: 20181016, end: 20181016
  20. DEXAMETHASONE. [Suspect]
     Active Substance: DEXAMETHASONE
     Dosage: 1 DOSAGE FORM, SINGLE; RIGHT KNEE AND FOOT
     Route: 014
     Dates: start: 20181113, end: 20181113
  21. TRIAMCINOLONE ACETONIDE. [Suspect]
     Active Substance: TRIAMCINOLONE ACETONIDE
     Indication: INTERVERTEBRAL DISC PROTRUSION
     Dosage: INJECTION THERAPY WITH 4 TRIAMCINOLONE INJECTIONS UNDER ULTRASOUND CONTROL BECAUSE OF A HERNIATED DI
     Route: 065
     Dates: start: 2020
  22. LIPOTALON [Suspect]
     Active Substance: DEXAMETHASONE PALMITATE
     Dosage: 1 DOSAGE FORM, SINGLE
     Route: 014
     Dates: start: 20181102, end: 20181102
  23. PREDNISOLON JENAPHARM [Suspect]
     Active Substance: PREDNISOLONE
     Dosage: 20 MILLIGRAM, QD
     Route: 048
     Dates: start: 2018
  24. DEXAMETHASONE. [Suspect]
     Active Substance: DEXAMETHASONE
     Dosage: 1 DOSAGE FORM, SINGLE; BOTH KNEES AND FOOT
     Route: 014
     Dates: start: 20181127, end: 20181127
  25. LIPOTALON [Suspect]
     Active Substance: DEXAMETHASONE PALMITATE
     Dosage: 1 DOSAGE FORM, SINGLE
     Route: 014
     Dates: start: 20181130, end: 20181130
  26. MEAVERIN [Concomitant]
     Dosage: 1 DOSAGE FORM, SINGLE; RIGHT KNEE AND FOOT
     Route: 014
     Dates: start: 20181120, end: 20181120
  27. MEAVERIN [Concomitant]
     Dosage: 1 DOSAGE FORM, SINGLE; BOTH KNEES AND FOOT
     Route: 014
     Dates: start: 20181127, end: 20181127
  28. DEXAMETHASONE. [Suspect]
     Active Substance: DEXAMETHASONE
     Dosage: 1 DOSAGE FORM, SINGLE; RIGHT KNEE AND FOOT
     Route: 014
     Dates: start: 20181120, end: 20181120
  29. LIPOTALON [Suspect]
     Active Substance: DEXAMETHASONE PALMITATE
     Dosage: 1 DOSAGE FORM, SINGLE; RIGHT KNEE AND FOOT
     Route: 014
     Dates: start: 20181113, end: 20181113
  30. PREDNISOLON JENAPHARM [Suspect]
     Active Substance: PREDNISOLONE
     Indication: EPICONDYLITIS
     Dosage: 20 MILLIGRAM, BID
     Route: 048
     Dates: start: 201810
  31. PREDNISOLON JENAPHARM [Suspect]
     Active Substance: PREDNISOLONE
     Indication: EPICONDYLITIS
     Dosage: 20 MILLIGRAM, TID
     Route: 048
     Dates: start: 201810
  32. MEAVERIN [Concomitant]
     Dosage: 1 DOSAGE FORM, SINGLE; RIGHT KNEE
     Route: 014
     Dates: start: 20181106, end: 20181106
  33. ORTOTON K.I.S. [Concomitant]
     Indication: PRODUCT USED FOR UNKNOWN INDICATION
     Route: 065
  34. LIPOTALON [Suspect]
     Active Substance: DEXAMETHASONE PALMITATE
     Dosage: 1 DOSAGE FORM, SINGLE
     Route: 014
     Dates: start: 20181106, end: 20181106
  35. PREDNISOLON JENAPHARM [Suspect]
     Active Substance: PREDNISOLONE
     Indication: ARTHRALGIA
     Dosage: 30X 20 MG
     Route: 048
     Dates: start: 20181204, end: 20181215
  36. HYALURON [Concomitant]
     Dosage: 1 DOSAGE FORM, SINGLE; RIGHT KNEE
     Route: 014
     Dates: start: 20181120, end: 20181120
  37. MEAVERIN [Concomitant]
     Dosage: 1 DOSAGE FORM, SINGLE; LEFT KNEE
     Route: 014
     Dates: start: 20181130, end: 20181130
  38. DEXAMETHASONE. [Suspect]
     Active Substance: DEXAMETHASONE
     Dosage: 1 DOSAGE FORM, SINGLE
     Route: 065
     Dates: start: 20181019, end: 20181019
  39. DEXAMETHASONE. [Suspect]
     Active Substance: DEXAMETHASONE
     Dosage: 1 DOSAGE FORM, SINGLE
     Route: 065
     Dates: start: 20181102, end: 20181102
  40. LIPOTALON [Suspect]
     Active Substance: DEXAMETHASONE PALMITATE
     Dosage: 1 DOSAGE FORM, SINGLE
     Route: 014
     Dates: start: 20181127, end: 20181127
  41. MEAVERIN [Concomitant]
     Dosage: 1 DOSAGE FORM, SINGLE; BOTH KNEES AND FOOT
     Route: 014
     Dates: start: 20181204, end: 20181204
  42. DICLOFENAC [Concomitant]
     Active Substance: DICLOFENAC
     Indication: PRODUCT USED FOR UNKNOWN INDICATION
     Dosage: 1 MILLILITER, SINGLE
     Route: 014
     Dates: start: 20181016, end: 20181016
  43. DICLOFENAC [Concomitant]
     Active Substance: DICLOFENAC
     Dosage: 1 MILLILITER, SINGLE
     Route: 014
     Dates: start: 20181019, end: 20181019
  44. DICLOFENAC [Concomitant]
     Active Substance: DICLOFENAC
     Dosage: 1 MILLILITER, SINGLE
     Route: 014
     Dates: start: 20181106, end: 20181106
  45. DICLOFENAC [Concomitant]
     Active Substance: DICLOFENAC
     Dosage: 1 MILLILITER, SINGLE
     Route: 014
     Dates: start: 20181113, end: 20181113
  46. DICLOFENAC [Concomitant]
     Active Substance: DICLOFENAC
     Dosage: 1 MILLILITER, SINGLE
     Route: 014
     Dates: start: 20181130, end: 20181130
  47. HYALART [Concomitant]
     Indication: PRODUCT USED FOR UNKNOWN INDICATION
     Dosage: UNK
     Route: 065

REACTIONS (67)
  - Inappropriate schedule of product administration [Not Recovered/Not Resolved]
  - Pelvic floor muscle weakness [Not Recovered/Not Resolved]
  - Osteonecrosis [Unknown]
  - Sleep disorder [Recovered/Resolved]
  - Weight increased [Unknown]
  - Hydrometra [Recovered/Resolved]
  - Atrophy [Unknown]
  - Vision blurred [Unknown]
  - Mental disorder [Recovered/Resolved]
  - Cystocele [Not Recovered/Not Resolved]
  - Arthralgia [Not Recovered/Not Resolved]
  - Influenza like illness [Not Recovered/Not Resolved]
  - Oedema peripheral [Recovered/Resolved]
  - Application site pain [Not Recovered/Not Resolved]
  - Joint instability [Not Recovered/Not Resolved]
  - Dermatitis allergic [Not Recovered/Not Resolved]
  - Abdominal discomfort [Unknown]
  - Lymphopenia [Recovered/Resolved]
  - Drug intolerance [Unknown]
  - Skin swelling [Recovered/Resolved]
  - Infection susceptibility increased [Unknown]
  - Intracranial pressure increased [Unknown]
  - Disturbance in attention [Not Recovered/Not Resolved]
  - Leukocytosis [Recovered/Resolved]
  - Pollakiuria [Recovered/Resolved]
  - Fatigue [Unknown]
  - Asthenia [Recovered/Resolved]
  - Dizziness [Unknown]
  - Oedema mucosal [Recovered/Resolved]
  - Hyperhidrosis [Unknown]
  - Muscle atrophy [Unknown]
  - Cushing^s syndrome [Not Recovered/Not Resolved]
  - Cushing^s syndrome [Not Recovered/Not Resolved]
  - Blood glucose increased [Recovered/Resolved]
  - Pyrexia [Not Recovered/Not Resolved]
  - Hallucination [Not Recovered/Not Resolved]
  - Seizure [Unknown]
  - Nausea [Recovered/Resolved]
  - Balance disorder [Not Recovered/Not Resolved]
  - Emphysema [Recovered/Resolved]
  - Sodium retention [Unknown]
  - Eczema [Unknown]
  - Osteoporosis [Unknown]
  - Eosinopenia [Recovered/Resolved]
  - Increased appetite [Unknown]
  - Hyperaesthesia [Unknown]
  - Fluid retention [Not Recovered/Not Resolved]
  - Bone pain [Recovered/Resolved]
  - Blood potassium decreased [Recovered/Resolved]
  - Blood pressure increased [Recovered/Resolved]
  - Adrenal insufficiency [Unknown]
  - Arthralgia [Not Recovered/Not Resolved]
  - Paraesthesia [Recovered/Resolved]
  - Polycythaemia [Recovered/Resolved]
  - Impaired healing [Unknown]
  - Arthropathy [Unknown]
  - Aggression [Recovered/Resolved]
  - Skin atrophy [Unknown]
  - Burning sensation [Unknown]
  - Abdominal distension [Unknown]
  - Muscular weakness [Recovered/Resolved]
  - Anaphylactic reaction [Unknown]
  - Thirst [Recovered/Resolved]
  - Headache [Unknown]
  - Platelet count increased [Recovered/Resolved]
  - Pruritus [Unknown]
  - Application site irritation [Unknown]

NARRATIVE: CASE EVENT DATE: 2018
